FAERS Safety Report 7258086-5 (Version None)
Quarter: 2011Q1

REPORT INFORMATION
  Report Type: 
  Country: None (occurrence: None)
  Receive Date: 20110129
  Receipt Date: 20100714
  Transmission Date: 20110831
  Serious: No
  Sender: FDA-Public Use
  Company Number: US-ABBOTT-10P-163-0657203-00

PATIENT
  Sex: Female

DRUGS (3)
  1. HUMIRA [Suspect]
     Indication: CROHN'S DISEASE
     Dates: start: 20100701
  2. PRILOSEC [Concomitant]
     Indication: GASTRIC ULCER
  3. HYDROCODONE [Concomitant]
     Indication: PAIN
     Dosage: 500-1/2 TABLET

REACTIONS (1)
  - INJECTION SITE HAEMATOMA [None]
